FAERS Safety Report 6176459-9 (Version None)
Quarter: 2009Q2

REPORT INFORMATION
  Report Type: 
  Country: None (occurrence: None)
  Receive Date: 20090501
  Receipt Date: 20090428
  Transmission Date: 20091009
  Serious: Yes (Hospitalization, Other)
  Sender: FDA-Public Use
  Company Number: GB-BAYER-200811981BNE

PATIENT
  Age: 42 Year
  Sex: Female
  Weight: 49 kg

DRUGS (29)
  1. SORAFENIB [Suspect]
     Indication: DRUG USE FOR UNKNOWN INDICATION
     Dosage: TOTAL DAILY DOSE: 800 MG
     Route: 048
     Dates: start: 20080207, end: 20080306
  2. SORAFENIB [Suspect]
     Dosage: TOTAL DAILY DOSE: 1200 MG
     Route: 048
     Dates: start: 20080307, end: 20080403
  3. SORAFENIB [Suspect]
     Dosage: TOTAL DAILY DOSE: 1600 MG
     Route: 048
     Dates: start: 20080404, end: 20080430
  4. SORAFENIB [Suspect]
     Dosage: TOTAL DAILY DOSE: 1600 MG
     Route: 048
     Dates: start: 20080501, end: 20080528
  5. SORAFENIB [Suspect]
     Dosage: UNIT DOSE: 800 MG
     Route: 048
     Dates: start: 20081030, end: 20081126
  6. SORAFENIB [Suspect]
     Dosage: UNIT DOSE: 800 MG
     Route: 048
     Dates: start: 20080904, end: 20081001
  7. SORAFENIB [Suspect]
     Dosage: CYCLE 6 - DOSE STOPPED
     Dates: start: 20080723, end: 20080806
  8. SORAFENIB [Suspect]
     Dosage: TOTAL DAILY DOSE: 1600 MG
     Route: 048
     Dates: start: 20080612, end: 20080625
  9. SORAFENIB [Suspect]
     Dosage: UNIT DOSE: 800 MG
     Route: 048
     Dates: start: 20081002, end: 20081029
  10. SORAFENIB [Suspect]
     Dosage: TOTAL DAILY DOSE: 1600 MG
     Route: 048
     Dates: start: 20080529, end: 20080610
  11. SORAFENIB [Suspect]
     Dosage: TOTAL DAILY DOSE: 1600 MG
     Route: 048
     Dates: start: 20080626, end: 20080722
  12. SORAFENIB [Suspect]
     Dosage: UNIT DOSE: 600 MG
     Route: 048
     Dates: start: 20080807, end: 20080903
  13. METOCLOPRAMIDE [Concomitant]
     Indication: NAUSEA
     Route: 048
     Dates: start: 20080107, end: 20080207
  14. CALOGEN [Concomitant]
     Indication: MEDICAL DIET
     Route: 048
     Dates: start: 20080107
  15. MAXIJUICE [Concomitant]
     Indication: MEDICAL DIET
     Route: 048
     Dates: start: 20080107
  16. PARACETAMOL [Concomitant]
     Indication: PAIN
     Route: 048
     Dates: start: 20080107
  17. MOTTILLIUM [Concomitant]
     Indication: NAUSEA
     Route: 048
     Dates: start: 20080207
  18. IMODIUM [Concomitant]
     Indication: DIARRHOEA
     Route: 048
     Dates: start: 20080403
  19. PIRITON [Concomitant]
     Indication: SKIN IRRITATION
     Route: 048
     Dates: start: 20080216, end: 20080403
  20. E45 [Concomitant]
     Indication: RASH
     Dosage: 1 APPLICATION
     Route: 061
     Dates: start: 20080215
  21. BENDROFLUROZIDE [Concomitant]
     Indication: HYPERTENSION
     Route: 048
     Dates: start: 20080306
  22. TINZAPARIN [Concomitant]
     Indication: THROMBOSIS
     Dosage: 9000 MEGA UNITS
     Route: 058
     Dates: start: 20080605
  23. OILATIUM [Concomitant]
     Indication: RASH
     Dosage: 1 APPLICATION
     Route: 061
     Dates: start: 20080221
  24. POLYTAR [Concomitant]
     Indication: RASH
     Dosage: 1 APPLICATION
     Route: 061
     Dates: start: 20080221
  25. MAGNESIUM GLYCEROPHOSPHATE [Concomitant]
     Indication: HYPOMAGNESAEMIA
     Dosage: 2 TABLETS BID
     Route: 048
     Dates: start: 20080731, end: 20080806
  26. CACICHEW [Concomitant]
     Indication: HYPOCALCAEMIA
     Route: 048
     Dates: start: 20080731, end: 20080806
  27. AMOXICILLIN [Concomitant]
     Indication: OROPHARYNGEAL PAIN
     Dosage: UNIT DOSE: 500 MG
     Route: 048
     Dates: start: 20080225, end: 20080302
  28. DOMPERIDONE [Concomitant]
     Indication: DRUG USE FOR UNKNOWN INDICATION
     Route: 048
     Dates: start: 20080207
  29. FLUCLOXACILLIN [Concomitant]
     Indication: DRUG USE FOR UNKNOWN INDICATION
     Dosage: UNIT DOSE: 250 MG
     Route: 048
     Dates: start: 20090119, end: 20090123

REACTIONS (6)
  - DIARRHOEA [None]
  - HYPOCALCAEMIA [None]
  - HYPOMAGNESAEMIA [None]
  - HYPOPHOSPHATAEMIA [None]
  - PALMAR-PLANTAR ERYTHRODYSAESTHESIA SYNDROME [None]
  - TETANY [None]
